FAERS Safety Report 8025352-5 (Version None)
Quarter: 2012Q1

REPORT INFORMATION
  Report Type: 
  Country: None (occurrence: None)
  Receive Date: 20120105
  Receipt Date: 20120103
  Transmission Date: 20120608
  Serious: Yes (Other)
  Sender: FDA-Public Use
  Company Number: DE-ELI_LILLY_AND_COMPANY-DE201111002536

PATIENT
  Sex: Male

DRUGS (3)
  1. RAMIPRIL [Concomitant]
     Dosage: UNK
  2. ASPIRIN [Concomitant]
     Dosage: UNK
  3. HUMALOG [Suspect]
     Indication: DIABETES MELLITUS
     Dosage: UNK
     Route: 058
     Dates: start: 20080501

REACTIONS (3)
  - BLOOD GLUCOSE INCREASED [None]
  - METASTATIC BRONCHIAL CARCINOMA [None]
  - BLOOD GLUCOSE DECREASED [None]
